FAERS Safety Report 6067878-X (Version None)
Quarter: 2009Q1

REPORT INFORMATION
  Report Type: 
  Country: None (occurrence: None)
  Receive Date: 20090203
  Receipt Date: 20090126
  Transmission Date: 20090719
  Serious: Yes (Other)
  Sender: FDA-Public Use
  Company Number: 157872

PATIENT
  Age: 61 Year
  Sex: Male

DRUGS (5)
  1. HEPARIN SODIUM [Suspect]
     Indication: THROMBOSIS
     Dosage: INTRAVENOUS DRIP
     Route: 041
  2. INTEGRILIN [Suspect]
     Indication: THROMBOSIS
     Dosage: 2 MCG/KG/MIN,
  3. WARFARIN SODIUM [Concomitant]
  4. ASPIRIN [Concomitant]
  5. PERSANTINE [Concomitant]

REACTIONS (5)
  - CHROMATURIA [None]
  - DRUG INTERACTION [None]
  - HAEMOLYSIS [None]
  - HEPARIN-INDUCED THROMBOCYTOPENIA [None]
  - THROMBOSIS [None]
